FAERS Safety Report 12211270 (Version 2)
Quarter: 2016Q2

REPORT INFORMATION
  Report Type: Spontaneous
  Country: IN (occurrence: IN)
  Receive Date: 20160325
  Receipt Date: 20160427
  Transmission Date: 20160815
  Serious: Yes (Death)
  Sender: FDA-Public Use
  Company Number: IN-PFIZER INC-2016174172

PATIENT
  Age: 14 Year
  Sex: Male

DRUGS (1)
  1. SULFAMETHOXAZOLE/TRIMETHOPRIM [Suspect]
     Active Substance: SULFAMETHOXAZOLE\TRIMETHOPRIM
     Indication: TOXOPLASMOSIS
     Dosage: UNK

REACTIONS (6)
  - Brain stem syndrome [None]
  - Heart rate abnormal [None]
  - Drug ineffective [Fatal]
  - Cardiac arrest [None]
  - Blood pressure fluctuation [None]
  - Sudden cardiac death [None]
